FAERS Safety Report 15081802 (Version 2)
Quarter: 2018Q2

REPORT INFORMATION
  Report Type: Spontaneous
  Country: US (occurrence: US)
  Receive Date: 20180628
  Receipt Date: 20180629
  Transmission Date: 20180711
  Serious: No
  Sender: FDA-Public Use
  Company Number: US-PFIZER INC-2018258110

PATIENT
  Age: 95 Year
  Sex: Female
  Weight: 39.2 kg

DRUGS (2)
  1. ZINC. [Concomitant]
     Active Substance: ZINC
     Indication: AGEUSIA
     Dosage: UNK (50 SOMETHING)
     Route: 048
     Dates: start: 2017
  2. NORVASC [Suspect]
     Active Substance: AMLODIPINE BESYLATE
     Indication: HYPERTENSION
     Dosage: UNK

REACTIONS (3)
  - Pre-existing condition improved [Unknown]
  - Intentional product use issue [Unknown]
  - Therapeutic response unexpected [Unknown]

NARRATIVE: CASE EVENT DATE: 201806
